FAERS Safety Report 6181897-4 (Version None)
Quarter: 2009Q2

REPORT INFORMATION
  Report Type: 
  Country: None (occurrence: None)
  Receive Date: 20090421
  Receipt Date: 20090408
  Transmission Date: 20091009
  Serious: Yes (Death, Other)
  Sender: FDA-Public Use
  Company Number: THYM-1001011

PATIENT
  Age: 60 Year
  Sex: Male
  Weight: 62 kg

DRUGS (3)
  1. THYMOGLOBULIN [Suspect]
     Indication: STEM CELL TRANSPLANT
     Dosage: 2.5 MG/KG, QD, INTRAVENOUS
     Route: 042
     Dates: start: 20090128, end: 20090128
  2. FLUDARABINE PHOSPHATE [Concomitant]
  3. BUSULFAN (BUSULFAN) [Concomitant]

REACTIONS (3)
  - BLOOD STEM CELL TRANSPLANT FAILURE [None]
  - IMMUNOSUPPRESSION [None]
  - PSEUDOMONAL SEPSIS [None]
